FAERS Safety Report 6355503-X (Version None)
Quarter: 2009Q3

REPORT INFORMATION
  Report Type: 
  Country: None (occurrence: None)
  Receive Date: 20090914
  Receipt Date: 20090831
  Transmission Date: 20100115
  Serious: Yes (Death, Other)
  Sender: FDA-Public Use
  Company Number: US-PFIZER INC-2008161272

PATIENT
  Sex: Female
  Weight: 82.993 kg

DRUGS (6)
  1. CHANTIX [Suspect]
     Indication: SMOKING CESSATION THERAPY
     Dates: start: 20080101, end: 20080101
  2. NICORETTE [Suspect]
     Dosage: UNK
     Dates: start: 20090101
  3. CELEXA [Concomitant]
     Dosage: UNK
  4. RISPERDAL [Concomitant]
     Dosage: UNK
  5. LUNESTA [Concomitant]
     Dosage: UNK
  6. ROZEREM [Concomitant]
     Dosage: UNK

REACTIONS (4)
  - DEATH [None]
  - DEPRESSION [None]
  - PARANOIA [None]
  - SUICIDAL IDEATION [None]
